FAERS Safety Report 22891935 (Version 2)
Quarter: 2023Q4

REPORT INFORMATION
  Report Type: Report from Study
  Country: US (occurrence: US)
  Receive Date: 20230901
  Receipt Date: 20231019
  Transmission Date: 20240110
  Serious: Yes (Hospitalization)
  Sender: FDA-Public Use
  Company Number: US-GILEAD-2023-0638768

PATIENT
  Age: 52 Year
  Sex: Female

DRUGS (30)
  1. AZTREONAM LYSINE [Suspect]
     Active Substance: AZTREONAM LYSINE
     Indication: Cystic fibrosis
     Dosage: INHALE 75 MG 3 TIMES A DAY CYCLE 28 DAYS ON THEN 28 DAYS OFF
     Route: 055
  2. AZTREONAM LYSINE [Suspect]
     Active Substance: AZTREONAM LYSINE
     Indication: Pseudomonas infection
  3. TRIKAFTA [Concomitant]
     Active Substance: ELEXACAFTOR\IVACAFTOR\TEZACAFTOR
  4. BOTOX [Concomitant]
     Active Substance: ONABOTULINUMTOXINA
  5. HUMALOG [Concomitant]
     Active Substance: INSULIN LISPRO
  6. ELIQUIS [Concomitant]
     Active Substance: APIXABAN
  7. KLONOPIN [Concomitant]
     Active Substance: CLONAZEPAM
  8. CELLCEPT [Concomitant]
     Active Substance: MYCOPHENOLATE MOFETIL
  9. ATIVAN [Concomitant]
     Active Substance: LORAZEPAM
  10. PROGRAF [Concomitant]
     Active Substance: TACROLIMUS
  11. MIRALAX [Concomitant]
     Active Substance: POLYETHYLENE GLYCOL 3350
  12. CALCIUM CARBONATE\CHOLECALCIFEROL [Concomitant]
     Active Substance: CALCIUM CARBONATE\CHOLECALCIFEROL
  13. BACTRIM [Concomitant]
     Active Substance: SULFAMETHOXAZOLE\TRIMETHOPRIM
  14. GOLYTELY [Concomitant]
     Active Substance: POLYETHYLENE GLYCOL 3350\POTASSIUM CHLORIDE\SODIUM BICARBONATE\SODIUM CHLORIDE\SODIUM SULFATE
  15. ZENPEP [Concomitant]
     Active Substance: PANCRELIPASE AMYLASE\PANCRELIPASE LIPASE\PANCRELIPASE PROTEASE
  16. VITAMIN C [Concomitant]
     Active Substance: ASCORBIC ACID
  17. ATENOLOL [Concomitant]
     Active Substance: ATENOLOL
  18. VITAMIN D3 [Concomitant]
     Active Substance: CHOLECALCIFEROL
  19. BIFIDOBACTERIUM ANIMALIS LACTIS [Concomitant]
     Active Substance: BIFIDOBACTERIUM ANIMALIS LACTIS
  20. FAMOTIDINE [Concomitant]
     Active Substance: FAMOTIDINE
  21. MAGNESIUM [Concomitant]
     Active Substance: MAGNESIUM
  22. OMEPRAZOLE [Concomitant]
     Active Substance: OMEPRAZOLE
  23. VIT E [TOCOPHEROL] [Concomitant]
  24. ACYCLOVIR [Concomitant]
     Active Substance: ACYCLOVIR
  25. LEVOTHYROXINE [Concomitant]
     Active Substance: LEVOTHYROXINE
  26. FLOVENT HFA [Concomitant]
     Active Substance: FLUTICASONE PROPIONATE
  27. SERTRALINE HYDROCHLORIDE [Concomitant]
     Active Substance: SERTRALINE HYDROCHLORIDE
  28. LYRICA [Concomitant]
     Active Substance: PREGABALIN
  29. PREDNISONE [Concomitant]
     Active Substance: PREDNISONE
  30. ACTIGALL [Concomitant]
     Active Substance: URSODIOL

REACTIONS (2)
  - Amnesia [Unknown]
  - Product use issue [Unknown]

NARRATIVE: CASE EVENT DATE: 20230501
